FAERS Safety Report 7318002 (Version 2)
Quarter: 2017Q2

REPORT INFORMATION
  Report Type: Report from Study
  Country: US (occurrence: US)
  Receive Date: 20100312
  Receipt Date: 20170622
  Transmission Date: 20170830
  Serious: Yes (Death)
  Sender: FDA-Public Use
  Company Number: US-ROCHE-689231

PATIENT

DRUGS (1)
  1. PYRIMETHAMINE/SULFADOXINE [Suspect]
     Active Substance: PYRIMETHAMINE\SULFADOXINE
     Indication: MALARIA PROPHYLAXIS
     Route: 064

REACTIONS (1)
  - Neonatal asphyxia [Fatal]
